FAERS Safety Report 7122695-4 (Version None)
Quarter: 2010Q4

REPORT INFORMATION
  Report Type: 
  Country: None (occurrence: None)
  Receive Date: 20101124
  Receipt Date: 20101118
  Transmission Date: 20110411
  Serious: Yes (Other)
  Sender: FDA-Public Use
  Company Number: US-PFIZER INC-2010152657

PATIENT
  Sex: Female
  Weight: 79.365 kg

DRUGS (6)
  1. REVATIO [Suspect]
     Indication: PULMONARY HYPERTENSION
     Dosage: 20 MG, 3X/DAY
     Route: 048
     Dates: start: 20101113
  2. SOTALOL [Concomitant]
     Indication: POST PROCEDURAL COMPLICATION
     Dosage: 160 MG, 2X/DAY
  3. SPIRONOLACTONE [Concomitant]
     Indication: DIURETIC THERAPY
     Dosage: 25 MG, 1X/DAY
  4. WARFARIN SODIUM [Concomitant]
     Indication: ANTICOAGULANT THERAPY
     Dosage: 4 MG, 1X/DAY
  5. POTASSIUM [Concomitant]
     Dosage: 10 MEQ, 2X/DAY
  6. LASIX [Concomitant]
     Dosage: 40 MG, AS NEEDED

REACTIONS (6)
  - DYSPNOEA [None]
  - EYE PAIN [None]
  - HEADACHE [None]
  - MALAISE [None]
  - OCULAR HYPERAEMIA [None]
  - VISUAL ACUITY REDUCED [None]
